FAERS Safety Report 9881587 (Version 1)
Quarter: 2014Q1

REPORT INFORMATION
  Report Type: Spontaneous
  Country: US (occurrence: None)
  Receive Date: 20140206
  Receipt Date: 20140206
  Transmission Date: 20141002
  Serious: Yes (Death, Hospitalization)
  Sender: FDA-Public Use
  Company Number: IMP_07189_2014

PATIENT
  Age: 53 Year
  Sex: Male

DRUGS (5)
  1. BUPROPION [Suspect]
     Indication: PRODUCT USED FOR UNKNOWN INDICATION
     Route: 048
  2. ETHANOL [Suspect]
     Dosage: 9 LARGE BEERS
     Route: 048
  3. VENLAFAXINE [Suspect]
     Indication: PRODUCT USED FOR UNKNOWN INDICATION
     Route: 048
  4. VALPROIC ACID [Concomitant]
  5. GABAPANTIN [Concomitant]

REACTIONS (13)
  - Poisoning [None]
  - Completed suicide [None]
  - Nausea [None]
  - Status epilepticus [None]
  - Hypotension [None]
  - Toxicity to various agents [None]
  - Hypoxic-ischaemic encephalopathy [None]
  - Anoxia [None]
  - Fluid overload [None]
  - Pulmonary oedema [None]
  - Ascites [None]
  - Hypoxic-ischaemic encephalopathy [None]
  - Unresponsive to stimuli [None]
